FAERS Safety Report 18147427 (Version 2)
Quarter: 2020Q4

REPORT INFORMATION
  Report Type: Report from Study
  Country: US (occurrence: US)
  Receive Date: 20200813
  Receipt Date: 20201026
  Transmission Date: 20210113
  Serious: Yes (Hospitalization)
  Sender: FDA-Public Use
  Company Number: NVSC2020US221289

PATIENT
  Sex: Male

DRUGS (1)
  1. COSENTYX [Suspect]
     Active Substance: SECUKINUMAB
     Indication: PSORIASIS
     Dosage: 300 MG, QMO
     Route: 058

REACTIONS (6)
  - Hypersensitivity [Unknown]
  - Kidney infection [Recovered/Resolved]
  - Cough [Unknown]
  - Cystitis [Recovered/Resolved]
  - Rhinorrhoea [Unknown]
  - Dysuria [Unknown]
